FAERS Safety Report 7410486-6 (Version None)
Quarter: 2011Q2

REPORT INFORMATION
  Report Type: 
  Country: None (occurrence: None)
  Receive Date: 20110413
  Receipt Date: 20110404
  Transmission Date: 20111010
  Serious: No
  Sender: FDA-Public Use
  Company Number: US-BIOGENIDEC-2010BI042928

PATIENT
  Sex: Female

DRUGS (1)
  1. TYSABRI [Suspect]
     Indication: MULTIPLE SCLEROSIS
     Route: 042
     Dates: start: 20080811

REACTIONS (13)
  - BURSA INJURY [None]
  - ARTHRALGIA [None]
  - FALL [None]
  - JOINT SPRAIN [None]
  - JOINT SWELLING [None]
  - MOOD SWINGS [None]
  - RASH ERYTHEMATOUS [None]
  - MUSCULOSKELETAL DISORDER [None]
  - BURSA DISORDER [None]
  - TREMOR [None]
  - JOINT EFFUSION [None]
  - JOINT INJURY [None]
  - CARTILAGE INJURY [None]
